APPROVED DRUG PRODUCT: TROSPIUM CHLORIDE
Active Ingredient: TROSPIUM CHLORIDE
Strength: 20MG
Dosage Form/Route: TABLET;ORAL
Application: A215781 | Product #001 | TE Code: AB
Applicant: ZAMEER PHARMACEUTICALS LLC
Approved: Feb 16, 2022 | RLD: No | RS: No | Type: RX